FAERS Safety Report 24867151 (Version 1)
Quarter: 2025Q1

REPORT INFORMATION
  Report Type: Spontaneous
  Country: NL (occurrence: NL)
  Receive Date: 20250121
  Receipt Date: 20250121
  Transmission Date: 20250408
  Serious: Yes (Hospitalization)
  Sender: OXFORD PHARMACEUTICALS, LLC
  Company Number: NL-Oxford Pharmaceuticals, LLC-2169459

PATIENT
  Age: 50 Year
  Sex: Male

DRUGS (3)
  1. LORAZEPAM [Suspect]
     Active Substance: LORAZEPAM
     Indication: Malignant catatonia
  2. CLOZAPINE [Suspect]
     Active Substance: CLOZAPINE
  3. AMANTADINE. [Suspect]
     Active Substance: AMANTADINE HYDROCHLORIDE

REACTIONS (2)
  - Drug ineffective [Unknown]
  - Off label use [Unknown]
